FAERS Safety Report 21921003 (Version 1)
Quarter: 2023Q1

REPORT INFORMATION
  Report Type: Spontaneous
  Country: GB (occurrence: GB)
  Receive Date: 20230127
  Receipt Date: 20230127
  Transmission Date: 20230418
  Serious: Yes (Death, Life-Threatening)
  Sender: FDA-Public Use
  Company Number: None

PATIENT

DRUGS (8)
  1. LANSOPRAZOLE [Suspect]
     Active Substance: LANSOPRAZOLE
     Indication: Gastrooesophageal reflux disease
     Dosage: LANSOPRAZOLE 30 MG, 1/1 DAY
     Route: 048
     Dates: end: 20131228
  2. LANSOPRAZOLE [Suspect]
     Active Substance: LANSOPRAZOLE
     Indication: Product used for unknown indication
  3. AMOXICILLIN SODIUM [Suspect]
     Active Substance: AMOXICILLIN SODIUM
     Indication: Urinary tract infection
     Dosage: AMOXICILLIN SODIUM 500 MG, 3/1 DAY
     Route: 048
     Dates: start: 20130214, end: 20131216
  4. FERROUS SULFATE MONOHYDRATE [Suspect]
     Active Substance: FERROUS SULFATE MONOHYDRATE
     Indication: Product used for unknown indication
     Dosage: FERROUS SULPHATE MONOHYDRATE 200 MG, 3/1 DAY
     Route: 048
     Dates: end: 20131228
  5. LACTULOSE [Suspect]
     Active Substance: LACTULOSE
     Indication: Product used for unknown indication
     Dosage: LACTULOSE 15 ML, 2/1 DAY
     Route: 048
     Dates: end: 20131228
  6. SENNA [Suspect]
     Active Substance: SENNA LEAF\SENNOSIDES\SENNOSIDES A AND B
     Indication: Product used for unknown indication
     Dosage: SENNA 15 MG, 1/1 DAY
     Route: 048
     Dates: end: 20131223
  7. PIPERACILLIN SODIUM\TAZOBACTAM SODIUM [Suspect]
     Active Substance: PIPERACILLIN SODIUM\TAZOBACTAM SODIUM
     Indication: Pneumonia
     Dosage: TAZOCIN, UNKNOWN
     Route: 042
     Dates: start: 20131216, end: 20131221
  8. PIPERACILLIN SODIUM\TAZOBACTAM SODIUM [Suspect]
     Active Substance: PIPERACILLIN SODIUM\TAZOBACTAM SODIUM
     Indication: Pneumonia
     Dosage: TAZOCIN 4,5 MG, UNKNOWN
     Route: 042
     Dates: start: 20131228, end: 20131231

REACTIONS (2)
  - Clostridium difficile colitis [Not Recovered/Not Resolved]
  - Death [Fatal]
